FAERS Safety Report 5659512-5 (Version None)
Quarter: 2008Q1

REPORT INFORMATION
  Report Type: 
  Country: None (occurrence: None)
  Receive Date: 20080311
  Receipt Date: 20080305
  Transmission Date: 20080703
  Serious: Yes (Life-Threatening, Hospitalization, Other)
  Sender: FDA-Public Use
  Company Number: PHEH2008US02469

PATIENT
  Age: 70 Year
  Sex: Female

DRUGS (10)
  1. LOVENOX [Suspect]
     Indication: THROMBOSIS PROPHYLAXIS
     Dosage: 40 MG, QD
     Route: 058
     Dates: start: 20050402, end: 20050403
  2. PREVACID [Concomitant]
  3. AMARYL [Concomitant]
  4. LORAZEPAM [Concomitant]
  5. ZYRTEC [Concomitant]
  6. SINGULAIR [Concomitant]
  7. ADVAIR DISKUS 100/50 [Concomitant]
  8. ASPIRIN [Concomitant]
  9. TYLENOL W/ CODEINE NO. 3 [Concomitant]
  10. LESCOL [Suspect]
     Dates: end: 20040313

REACTIONS (49)
  - ABDOMINAL DISTENSION [None]
  - ABDOMINAL PAIN [None]
  - ABDOMINAL TENDERNESS [None]
  - ASTHMA [None]
  - BACK PAIN [None]
  - BLOOD PRESSURE INCREASED [None]
  - BODY TEMPERATURE INCREASED [None]
  - BURSITIS [None]
  - CARPAL TUNNEL DECOMPRESSION [None]
  - CHRONIC OBSTRUCTIVE PULMONARY DISEASE [None]
  - DYSPNOEA [None]
  - ECCHYMOSIS [None]
  - ERYTHEMA [None]
  - EXOSTOSIS [None]
  - FEELING ABNORMAL [None]
  - FOOT DEFORMITY [None]
  - FUNGUS CULTURE POSITIVE [None]
  - GASTRITIS [None]
  - GASTROOESOPHAGEAL REFLUX DISEASE [None]
  - HAEMATOCRIT DECREASED [None]
  - HAEMOGLOBIN DECREASED [None]
  - HAEMORRHAGE [None]
  - HEART RATE INCREASED [None]
  - HERNIA REPAIR [None]
  - HYPERKERATOSIS [None]
  - HYPERSENSITIVITY [None]
  - KNEE ARTHROPLASTY [None]
  - LIMB OPERATION [None]
  - LIVER FUNCTION TEST ABNORMAL [None]
  - LUNG INFILTRATION [None]
  - MUSCLE HAEMORRHAGE [None]
  - NAIL DISORDER [None]
  - OESOPHAGITIS [None]
  - OXYGEN SATURATION DECREASED [None]
  - PALPITATIONS [None]
  - PERIPHERAL VASCULAR DISORDER [None]
  - PNEUMONIA [None]
  - PNEUMONIA ASPIRATION [None]
  - RESPIRATORY RATE INCREASED [None]
  - RHINITIS ALLERGIC [None]
  - SENSORY DISTURBANCE [None]
  - SLEEP APNOEA SYNDROME [None]
  - SURGERY [None]
  - SWELLING [None]
  - SYNOVIAL CYST [None]
  - TENDONITIS [None]
  - TYPE 2 DIABETES MELLITUS [None]
  - WHEEZING [None]
  - WRIST SURGERY [None]
